FAERS Safety Report 13192311 (Version 3)
Quarter: 2017Q1

REPORT INFORMATION
  Report Type: Spontaneous
  Country: US (occurrence: US)
  Receive Date: 20170207
  Receipt Date: 20170222
  Transmission Date: 20170428
  Serious: Yes (Hospitalization)
  Sender: FDA-Public Use
  Company Number: US-ASTRAZENECA-2017SE11887

PATIENT
  Age: 27007 Day
  Sex: Female
  Weight: 108 kg

DRUGS (4)
  1. BYDUREON [Suspect]
     Active Substance: EXENATIDE
     Indication: TYPE 2 DIABETES MELLITUS
     Route: 058
     Dates: start: 20170121
  2. BYDUREON [Suspect]
     Active Substance: EXENATIDE
     Indication: TYPE 2 DIABETES MELLITUS
     Route: 058
     Dates: start: 20161225, end: 201701
  3. BYDUREON [Suspect]
     Active Substance: EXENATIDE
     Indication: TYPE 2 DIABETES MELLITUS
     Route: 058
  4. INSULIN [Concomitant]
     Active Substance: INSULIN NOS

REACTIONS (14)
  - Device issue [Unknown]
  - Skin ulcer [Unknown]
  - Malaise [Unknown]
  - Decreased appetite [Unknown]
  - Injection site pruritus [Unknown]
  - Adverse drug reaction [Unknown]
  - Colitis ischaemic [Recovering/Resolving]
  - Injection site haemorrhage [Unknown]
  - Drug dose omission [Unknown]
  - Product quality issue [Unknown]
  - Nausea [Unknown]
  - Injection site mass [Unknown]
  - Injection site swelling [Unknown]
  - Injection site nodule [Unknown]

NARRATIVE: CASE EVENT DATE: 20161225
